FAERS Safety Report 9442199 (Version 1)
Quarter: 2013Q3

REPORT INFORMATION
  Report Type: Spontaneous
  Country: US (occurrence: None)
  Receive Date: 20130805
  Receipt Date: 20130805
  Transmission Date: 20140515
  Serious: No
  Sender: FDA-Public Use
  Company Number: None

PATIENT
  Age: 60 Year
  Sex: Female
  Weight: 73.2 kg

DRUGS (1)
  1. INTERFERON 2B [Suspect]
     Dates: start: 20120720

REACTIONS (2)
  - Lymphadenopathy [None]
  - Sarcoidosis [None]
